FAERS Safety Report 5314384-3 (Version None)
Quarter: 2007Q2

REPORT INFORMATION
  Report Type: 
  Country: None (occurrence: None)
  Receive Date: 20070502
  Receipt Date: 20070425
  Transmission Date: 20071010
  Serious: No
  Sender: FDA-Public Use
  Company Number: PHEH2007US04577

PATIENT
  Age: 74 Year
  Sex: Female
  Weight: 68.934 kg

DRUGS (8)
  1. ZELNORM [Suspect]
     Indication: CONSTIPATION
     Dosage: 6 MG, BID
     Route: 048
     Dates: start: 20060101, end: 20070405
  2. NORVASC [Concomitant]
     Indication: HYPERTENSION
     Dosage: 10 MG, QD AT BEDTIME
     Route: 048
  3. TOPROL-XL [Concomitant]
     Indication: HYPERTENSION
     Dosage: 100 MG, QD
     Route: 048
     Dates: start: 20060101
  4. LASIX [Concomitant]
     Indication: OEDEMA
     Dosage: 40 MG, BID
     Route: 048
     Dates: start: 20060101
  5. ACETYLSALICYLIC ACID SRT [Concomitant]
     Indication: CARDIOVASCULAR EVENT PROPHYLAXIS
     Dosage: 80 MG, QD
     Route: 048
     Dates: start: 20060101
  6. ZETIA [Concomitant]
     Indication: DYSLIPIDAEMIA
     Dosage: 10 MG, QD AT BEDTIME
     Route: 048
     Dates: start: 20060101
  7. SYNTHROID [Concomitant]
     Indication: HYPOTHYROIDISM
     Dosage: 8 MG, QD
     Route: 048
  8. TRAVATAN [Concomitant]
     Indication: GLAUCOMA
     Dosage: 1 GTT, QD AT BEDTIME
     Route: 047

REACTIONS (4)
  - CHEST PAIN [None]
  - COMPRESSION STOCKINGS APPLICATION [None]
  - GAIT DISTURBANCE [None]
  - OEDEMA PERIPHERAL [None]
